FAERS Safety Report 5271488-1 (Version None)
Quarter: 2007Q1

REPORT INFORMATION
  Report Type: 
  Country: None (occurrence: None)
  Receive Date: 20070316
  Receipt Date: 20070307
  Transmission Date: 20070707
  Serious: Yes (Hospitalization)
  Sender: FDA-Public Use
  Company Number: APP200700031

PATIENT
  Age: 16 Year
  Sex: Male
  Weight: 59 kg

DRUGS (2)
  1. CEFTRIAXONE [Suspect]
     Indication: LYME DISEASE
     Dosage: 4 GM (2 GM, 2 IN 1 D)
  2. CEFTRIAXONE [Suspect]
     Indication: MENINGITIS
     Dosage: 4 GM (2 GM, 2 IN 1 D)

REACTIONS (2)
  - CHOLECYSTITIS ACUTE [None]
  - CHOLELITHIASIS [None]
